FAERS Safety Report 12073196 (Version 1)
Quarter: 2016Q1

REPORT INFORMATION
  Report Type: Spontaneous
  Country: US (occurrence: None)
  Receive Date: 20160211
  Receipt Date: 20160211
  Transmission Date: 20160526
  Serious: Yes (Hospitalization, Other)
  Sender: FDA-Public Use
  Company Number: None

PATIENT
  Age: 61 Year
  Sex: Male
  Weight: 68.04 kg

DRUGS (9)
  1. ABILIFY [Concomitant]
     Active Substance: ARIPIPRAZOLE
  2. LOSARTAN. [Concomitant]
     Active Substance: LOSARTAN
  3. CALCIUM [Concomitant]
     Active Substance: CALCIUM
  4. CLONIDINE. [Concomitant]
     Active Substance: CLONIDINE
  5. MIRTAZAPINE. [Concomitant]
     Active Substance: MIRTAZAPINE
  6. TYLENOL [Concomitant]
     Active Substance: ACETAMINOPHEN
  7. VIT. B [Concomitant]
  8. HUMIRA [Suspect]
     Active Substance: ADALIMUMAB
     Indication: RHEUMATOID ARTHRITIS
     Dosage: 40 ML A WEEK, ONCE A WEEK, INJECTION TO STOMACH AREA OR THIGHT
     Dates: start: 20060101, end: 20160201
  9. FISH OIL [Concomitant]
     Active Substance: FISH OIL

REACTIONS (3)
  - Diverticular perforation [None]
  - Weight decreased [None]
  - Mental disorder [None]

NARRATIVE: CASE EVENT DATE: 20151125
